FAERS Safety Report 7778757-1 (Version None)
Quarter: 2011Q3

REPORT INFORMATION
  Report Type: 
  Country: None (occurrence: None)
  Receive Date: 20110926
  Receipt Date: 20110920
  Transmission Date: 20111222
  Serious: No
  Sender: FDA-Public Use
  Company Number: US-BAYER-2011-088393

PATIENT
  Sex: Female

DRUGS (2)
  1. MIRENA [Suspect]
     Dosage: 20 ?G/D, CONT
     Route: 015
     Dates: start: 20110804
  2. MIRENA [Suspect]
     Dosage: 20 ?G/D, CONT
     Route: 015

REACTIONS (6)
  - POSTPARTUM DEPRESSION [None]
  - UTERINE DISORDER [None]
  - ADVERSE DRUG REACTION [None]
  - ACNE [None]
  - ABDOMINAL DISTENSION [None]
  - WEIGHT INCREASED [None]
